FAERS Safety Report 10285794 (Version 2)
Quarter: 2014Q3

REPORT INFORMATION
  Report Type: Spontaneous
  Country: US (occurrence: None)
  Receive Date: 20140703
  Receipt Date: 20140716
  Transmission Date: 20150326
  Serious: Yes (Hospitalization)
  Sender: FDA-Public Use
  Company Number: UNT-2014-002839

PATIENT
  Age: 71 Year
  Sex: Female

DRUGS (4)
  1. TYVASO [Suspect]
     Active Substance: TREPROSTINIL
     Indication: PULMONARY ARTERIAL HYPERTENSION
     Dosage: 18 TO 54 MICROGRAMS (3 TO 9 BREATHS), QID, INHALATION
     Route: 055
     Dates: start: 20130429
  2. WARFARIN (WARFARIN) [Concomitant]
     Active Substance: WARFARIN
  3. REVATIO (SILDENAFIL CITRATE) ) [Concomitant]
  4. LETAIRIS [Suspect]
     Active Substance: AMBRISENTAN
     Indication: PRODUCT USED FOR UNKNOWN INDICATION
     Dates: end: 2014

REACTIONS (3)
  - Blood sodium decreased [None]
  - Renal disorder [None]
  - Blood electrolytes abnormal [None]
